FAERS Safety Report 7720774-1 (Version None)
Quarter: 2011Q3

REPORT INFORMATION
  Report Type: 
  Country: None (occurrence: None)
  Receive Date: 20110830
  Receipt Date: 20110830
  Transmission Date: 20111222
  Serious: Yes (Life-Threatening, Disabling, Other)
  Sender: FDA-Public Use
  Company Number: None

PATIENT
  Age: 55 Year
  Sex: Male
  Weight: 99.7913 kg

DRUGS (4)
  1. CRESTOR [Suspect]
     Indication: BLOOD CHOLESTEROL INCREASED
     Dosage: 40 MG DAILY
     Dates: start: 20060101, end: 20101225
  2. METFORMIN HCL [Concomitant]
  3. LISINOPRIL [Concomitant]
  4. GLYPLZIDE [Concomitant]

REACTIONS (2)
  - KETOACIDOSIS [None]
  - GLYCOSYLATED HAEMOGLOBIN INCREASED [None]
